FAERS Safety Report 5802449-9 (Version None)
Quarter: 2008Q3

REPORT INFORMATION
  Report Type: 
  Country: None (occurrence: None)
  Receive Date: 20080708
  Receipt Date: 20080422
  Transmission Date: 20090109
  Serious: Yes (Hospitalization)
  Sender: FDA-Public Use
  Company Number: ES-BAYER-200817982GPV

PATIENT
  Age: 95 Year
  Sex: Male
  Weight: 55 kg

DRUGS (9)
  1. ASPIRIN [Suspect]
     Indication: ANTIPLATELET THERAPY
     Dosage: UNIT DOSE: 100 MG
     Route: 048
     Dates: start: 19950101, end: 20060621
  2. IRON SUPPLEMENTS [Concomitant]
     Indication: DRUG USE FOR UNKNOWN INDICATION
     Route: 065
  3. FUROSEMIDE [Concomitant]
     Indication: DRUG USE FOR UNKNOWN INDICATION
     Route: 065
  4. EUTIROX [Concomitant]
     Indication: HYPOTHYROIDISM
     Route: 065
  5. TRANGOREX [Concomitant]
     Indication: ATRIAL FIBRILLATION
     Route: 065
  6. UNIBENESTAN [Concomitant]
     Indication: BENIGN PROSTATIC HYPERPLASIA
     Route: 065
  7. THYROTROPIN [Concomitant]
     Indication: DRUG USE FOR UNKNOWN INDICATION
     Route: 065
  8. ALBUTEROL [Concomitant]
     Indication: DRUG USE FOR UNKNOWN INDICATION
     Route: 065
  9. OMEPRAZOLE [Concomitant]
     Indication: DRUG USE FOR UNKNOWN INDICATION
     Route: 048

REACTIONS (2)
  - PLATELET DISORDER [None]
  - PUNCTURE SITE HAEMORRHAGE [None]
